FAERS Safety Report 11012318 (Version 1)
Quarter: 2015Q2

REPORT INFORMATION
  Report Type: Spontaneous
  Country: US (occurrence: None)
  Receive Date: 20150410
  Receipt Date: 20150410
  Transmission Date: 20150821
  Serious: Yes (Other)
  Sender: FDA-Public Use
  Company Number: None

PATIENT
  Age: 63 Year
  Sex: Male
  Weight: 51.26 kg

DRUGS (2)
  1. XELODA [Suspect]
     Active Substance: CAPECITABINE
     Indication: GASTRIC CANCER
     Dosage: ORAL?500MG?ORAL?2PO AM AND 3PO PM
     Route: 048
     Dates: start: 20150309
  2. XELODA [Suspect]
     Active Substance: CAPECITABINE
     Indication: BLADDER CANCER
     Dosage: ORAL?500MG?ORAL?2PO AM AND 3PO PM
     Route: 048
     Dates: start: 20150309

REACTIONS (4)
  - Dry skin [None]
  - Insomnia [None]
  - Pruritus [None]
  - Decreased appetite [None]

NARRATIVE: CASE EVENT DATE: 20150401
